FAERS Safety Report 8246275-2 (Version None)
Quarter: 2012Q1

REPORT INFORMATION
  Report Type: 
  Country: None (occurrence: None)
  Receive Date: 20120329
  Receipt Date: 20120329
  Transmission Date: 20120608
  Serious: No
  Sender: FDA-Public Use
  Company Number: None

PATIENT
  Sex: Female

DRUGS (1)
  1. FORTEO [Suspect]
     Dosage: 20 MCG DAILY SUB-Q
     Route: 058
     Dates: start: 20120217, end: 20120320

REACTIONS (2)
  - HYPOAESTHESIA [None]
  - PARAESTHESIA [None]
